FAERS Safety Report 8352060-3 (Version None)
Quarter: 2012Q2

REPORT INFORMATION
  Report Type: 
  Country: None (occurrence: None)
  Receive Date: 20120511
  Receipt Date: 20120430
  Transmission Date: 20120825
  Serious: Yes (Hospitalization)
  Sender: FDA-Public Use
  Company Number: US-JNJFOC-20120412928

PATIENT
  Sex: Male
  Weight: 26.3 kg

DRUGS (7)
  1. LASOPRAZOLE [Concomitant]
  2. METHOTREXATE [Suspect]
     Indication: CROHN'S DISEASE
  3. INFLIXIMAB, RECOMBINANT [Suspect]
     Indication: CROHN'S DISEASE
     Route: 042
     Dates: start: 20100729, end: 20111214
  4. ONDANSETRON [Concomitant]
  5. HUMIRA [Concomitant]
  6. PREDNISONE [Concomitant]
  7. PROBIOTICS [Concomitant]

REACTIONS (6)
  - UPPER RESPIRATORY TRACT INFECTION [None]
  - WEIGHT DECREASED [None]
  - CROHN'S DISEASE [None]
  - CONJUNCTIVITIS [None]
  - DYSPEPSIA [None]
  - MALAISE [None]
